FAERS Safety Report 19017755 (Version 1)
Quarter: 2021Q1

REPORT INFORMATION
  Report Type: Spontaneous
  Country: US (occurrence: US)
  Receive Date: 20210316
  Receipt Date: 20210316
  Transmission Date: 20210420
  Serious: No
  Sender: FDA-Public Use
  Company Number: None

PATIENT
  Age: 66 Year
  Sex: Male
  Weight: 93.6 kg

DRUGS (1)
  1. LISINOPRIL 1MG TABS [Suspect]
     Active Substance: LISINOPRIL
     Indication: HYPERTENSION
     Dosage: ?          QUANTITY:1 TABLET(S);?
     Route: 048
     Dates: start: 20201226, end: 20210313

REACTIONS (5)
  - Sleep disorder [None]
  - Cough [None]
  - Oropharyngeal discomfort [None]
  - Seasonal allergy [None]
  - Pharyngeal swelling [None]

NARRATIVE: CASE EVENT DATE: 20210130
